FAERS Safety Report 7541677-1 (Version None)
Quarter: 2011Q2

REPORT INFORMATION
  Report Type: 
  Country: None (occurrence: None)
  Receive Date: 20110613
  Receipt Date: 20110530
  Transmission Date: 20111010
  Serious: Yes (Other)
  Sender: FDA-Public Use
  Company Number: CH-RANBAXY-2011RR-45217

PATIENT
  Age: 67 Year
  Sex: Male

DRUGS (7)
  1. AMIODARONE HCL [Suspect]
     Indication: ATRIAL FIBRILLATION
     Route: 042
  2. ATORVASTATIN [Suspect]
     Dosage: 80 MG, QD
  3. FLUCONAZOLE [Suspect]
     Indication: OSTEOMYELITIS FUNGAL
     Dosage: 400 MG, UNK
     Route: 042
  4. ALLOPURINOL [Concomitant]
     Dosage: 100 MG, QD
  5. IBUTILIDE [Concomitant]
     Indication: ATRIAL FIBRILLATION
  6. ATORVASTATIN [Suspect]
     Dosage: 40 MG, UNK
     Route: 048
  7. DOBUTAMINE HYDROCHLORIDE [Concomitant]
     Indication: ATRIAL FIBRILLATION

REACTIONS (3)
  - DRUG INTERACTION [None]
  - GOUT [None]
  - RHABDOMYOLYSIS [None]
